FAERS Safety Report 23756116 (Version 1)
Quarter: 2024Q2

REPORT INFORMATION
  Report Type: Spontaneous
  Country: US (occurrence: None)
  Receive Date: 20240418
  Receipt Date: 20240418
  Transmission Date: 20240715
  Serious: No
  Sender: FDA-Public Use
  Company Number: 2024A086016

PATIENT
  Age: 22393 Day
  Sex: Female

DRUGS (3)
  1. BYDUREON BCISE [Suspect]
     Active Substance: EXENATIDE
  2. METFORMIN [Concomitant]
     Active Substance: METFORMIN HYDROCHLORIDE
  3. 11 DIFFERENT MEDICATION [Concomitant]

REACTIONS (4)
  - Rectal haemorrhage [Unknown]
  - Injection site haemorrhage [Unknown]
  - Device use issue [Unknown]
  - Device issue [Unknown]

NARRATIVE: CASE EVENT DATE: 20240328
